FAERS Safety Report 5285760-2 (Version None)
Quarter: 2007Q1

REPORT INFORMATION
  Report Type: 
  Country: None (occurrence: None)
  Receive Date: 20070127
  Receipt Date: 20061207
  Transmission Date: 20070707
  Serious: No
  Sender: FDA-Public Use
  Company Number: POMP-10905

PATIENT
  Age: 37 Year
  Sex: Female
  Weight: 50.8029 kg

DRUGS (4)
  1. MYOZYME [Suspect]
     Indication: GLYCOGEN STORAGE DISEASE TYPE II
     Dosage: 20 MG/KG Q2WKS IV
     Route: 042
     Dates: start: 20060510
  2. TOPROL-XL [Concomitant]
  3. CELEBREX [Concomitant]
  4. PAXIL [Concomitant]

REACTIONS (2)
  - CHEST DISCOMFORT [None]
  - INFUSION SITE REACTION [None]
